FAERS Safety Report 23369096 (Version 1)
Quarter: 2024Q1

REPORT INFORMATION
  Report Type: Spontaneous
  Country: GB (occurrence: GB)
  Receive Date: 20240105
  Receipt Date: 20240105
  Transmission Date: 20240410
  Serious: Yes (Other)
  Sender: FDA-Public Use
  Company Number: GB-MHRA-EYC 00268320

PATIENT
  Age: 36 Year
  Sex: Female
  Weight: 51 kg

DRUGS (3)
  1. ACETAMINOPHEN [Suspect]
     Active Substance: ACETAMINOPHEN
     Indication: Product used for unknown indication
     Dosage: UNK (TESCO)
     Route: 065
  2. ACETAMINOPHEN [Suspect]
     Active Substance: ACETAMINOPHEN
     Indication: Pain
     Dosage: 500 MILLIGRAM (SAINSBURY)
     Route: 048
     Dates: start: 20211205
  3. PANADOL [Suspect]
     Active Substance: ACETAMINOPHEN
     Indication: Product used for unknown indication
     Dosage: UNK
     Route: 065

REACTIONS (8)
  - Fatigue [Recovering/Resolving]
  - Hallucination [Recovering/Resolving]
  - Chills [Recovering/Resolving]
  - Abnormal dreams [Recovering/Resolving]
  - Somnolence [Unknown]
  - Confusional state [Unknown]
  - Anxiety [Unknown]
  - Nightmare [Unknown]

NARRATIVE: CASE EVENT DATE: 20211205
